FAERS Safety Report 8470761-3 (Version None)
Quarter: 2012Q2

REPORT INFORMATION
  Report Type: 
  Country: None (occurrence: None)
  Receive Date: 20120627
  Receipt Date: 20120619
  Transmission Date: 20120825
  Serious: Yes (Other)
  Sender: FDA-Public Use
  Company Number: US-BAYER-2012-062497

PATIENT
  Age: 37 Year
  Sex: Female
  Weight: 52.154 kg

DRUGS (1)
  1. YAZ [Suspect]

REACTIONS (1)
  - DEEP VEIN THROMBOSIS [None]
